FAERS Safety Report 10241514 (Version 1)
Quarter: 2014Q2

REPORT INFORMATION
  Report Type: Spontaneous
  Country: US (occurrence: US)
  Receive Date: 20140617
  Receipt Date: 20140617
  Transmission Date: 20141212
  Serious: No
  Sender: FDA-Public Use
  Company Number: US-ELI_LILLY_AND_COMPANY-US201406000770

PATIENT
  Sex: 0

DRUGS (3)
  1. ZYPREXA ZYDIS [Suspect]
     Indication: MOOD SWINGS
     Dosage: 5 MG, UNKNOWN
     Route: 065
     Dates: start: 201306
  2. ZYPREXA ZYDIS [Suspect]
     Dosage: 10 MG, UNKNOWN
     Route: 065
  3. LISINOPRIL [Concomitant]
     Dosage: UNK, UNKNOWN
     Route: 065

REACTIONS (3)
  - Burning sensation [Unknown]
  - Menstruation irregular [Unknown]
  - Skin odour abnormal [Unknown]
